FAERS Safety Report 4586622-6 (Version None)
Quarter: 2005Q1

REPORT INFORMATION
  Report Type: 
  Country: None (occurrence: None)
  Receive Date: 20050218
  Receipt Date: 20040726
  Transmission Date: 20050727
  Serious: No
  Sender: FDA-Public Use
  Company Number: US-BRISTOL-MYERS SQUIBB COMPANY-12652541

PATIENT
  Age: 57 Year
  Sex: Male
  Weight: 98 kg

DRUGS (10)
  1. CARBOPLATIN [Suspect]
     Indication: NEOPLASM MALIGNANT
     Route: 042
     Dates: start: 20040621, end: 20040621
  2. PACLITAXEL [Suspect]
     Indication: NEOPLASM MALIGNANT
     Route: 042
     Dates: start: 20040621, end: 20040621
  3. ANZEMET [Concomitant]
     Indication: PREMEDICATION
     Route: 042
  4. DECADRON [Concomitant]
     Indication: PREMEDICATION
     Route: 042
  5. BENADRYL [Concomitant]
     Indication: PREMEDICATION
     Route: 042
  6. ZOMETA [Concomitant]
  7. LIPITOR [Concomitant]
  8. LUPRON [Concomitant]
  9. PREVACID [Concomitant]
  10. M.V.I. [Concomitant]

REACTIONS (1)
  - DYSURIA [None]
